FAERS Safety Report 9671892 (Version 2)
Quarter: 2013Q4

REPORT INFORMATION
  Report Type: Spontaneous
  Country: US (occurrence: US)
  Receive Date: 20131106
  Receipt Date: 20131205
  Transmission Date: 20140711
  Serious: Yes (Disabling, Other)
  Sender: FDA-Public Use
  Company Number: US-PFIZER INC-2013313494

PATIENT
  Age: 62 Year
  Sex: Female
  Weight: 58.96 kg

DRUGS (6)
  1. PREMARIN [Suspect]
     Indication: VULVOVAGINAL DRYNESS
     Dosage: UNK, 3X/WEEK
     Route: 067
     Dates: end: 2012
  2. PREMARIN [Suspect]
     Indication: VAGINAL LESION
  3. TYLENOL [Concomitant]
     Indication: PAIN
     Dosage: UNK
  4. TYLENOL [Concomitant]
     Indication: INFLAMMATION
  5. IBUPROFEN [Concomitant]
     Indication: PAIN
     Dosage: UNK
  6. IBUPROFEN [Concomitant]
     Indication: INFLAMMATION

REACTIONS (5)
  - Road traffic accident [Unknown]
  - Limb discomfort [Recovering/Resolving]
  - Dysstasia [Recovering/Resolving]
  - Abasia [Recovering/Resolving]
  - Vaginal haemorrhage [Unknown]
